FAERS Safety Report 16057620 (Version 1)
Quarter: 2019Q1

REPORT INFORMATION
  Report Type: Spontaneous
  Country: US (occurrence: US)
  Receive Date: 20190311
  Receipt Date: 20190311
  Transmission Date: 20190418
  Serious: No
  Sender: FDA-Public Use
  Company Number: US-SA-2019SA063446

PATIENT
  Age: 64 Year

DRUGS (1)
  1. TOUJEO [Suspect]
     Active Substance: INSULIN GLARGINE
     Indication: TYPE 2 DIABETES MELLITUS
     Dosage: 130 U, QD
     Route: 065

REACTIONS (4)
  - Condition aggravated [Unknown]
  - Erythema [Unknown]
  - Drug hypersensitivity [Unknown]
  - Pruritus [Unknown]
